FAERS Safety Report 23614847 (Version 1)
Quarter: 2024Q1

REPORT INFORMATION
  Report Type: Report from Study
  Country: CA (occurrence: CA)
  Receive Date: 20240311
  Receipt Date: 20240311
  Transmission Date: 20240410
  Serious: Yes (Other)
  Sender: FDA-Public Use
  Company Number: CA-JNJFOC-20240110852

PATIENT
  Age: 45 Year
  Sex: Female

DRUGS (11)
  1. REMICADE [Suspect]
     Active Substance: INFLIXIMAB
     Indication: Crohn^s disease
     Dosage: START DATE ALSO REPORTED AS 12-OCT-2022
     Route: 041
     Dates: start: 20180829, end: 20240102
  2. RAMIPRIL [Concomitant]
     Active Substance: RAMIPRIL
  3. RAMIPRIL [Concomitant]
     Active Substance: RAMIPRIL
  4. LYRICA [Concomitant]
     Active Substance: PREGABALIN
  5. ZOLOFT [Concomitant]
     Active Substance: SERTRALINE HYDROCHLORIDE
  6. CLONAZEPAM [Concomitant]
     Active Substance: CLONAZEPAM
     Dosage: AS REQUIRED
  7. BACLOFEN [Concomitant]
     Active Substance: BACLOFEN
     Dosage: AS REQUIRED
  8. WELLBUTRIN [Concomitant]
     Active Substance: BUPROPION HYDROCHLORIDE
  9. WELLBUTRIN [Concomitant]
     Active Substance: BUPROPION HYDROCHLORIDE
  10. LIRAGLUTIDE [Concomitant]
     Active Substance: LIRAGLUTIDE
  11. SAXENDA [Concomitant]
     Active Substance: LIRAGLUTIDE

REACTIONS (3)
  - Myocardial infarction [Recovering/Resolving]
  - COVID-19 [Recovering/Resolving]
  - Ear infection [Recovering/Resolving]

NARRATIVE: CASE EVENT DATE: 20231208
